FAERS Safety Report 14308494 (Version 1)
Quarter: 2017Q4

REPORT INFORMATION
  Report Type: Spontaneous
  Country: US (occurrence: US)
  Receive Date: 20171220
  Receipt Date: 20171220
  Transmission Date: 20180321
  Serious: No
  Sender: FDA-Public Use
  Company Number: US-BAYER-2017-242886

PATIENT
  Age: 44 Year
  Sex: Female

DRUGS (1)
  1. ACARBOSE. [Suspect]
     Active Substance: ACARBOSE
     Dosage: UNK

REACTIONS (1)
  - Drug ineffective [None]
